FAERS Safety Report 8665131 (Version 2)
Quarter: 2013Q2

REPORT INFORMATION
  Report Type: Spontaneous
  Country: US (occurrence: US)
  Receive Date: 20120716
  Receipt Date: 20130528
  Transmission Date: 20140414
  Serious: No
  Sender: FDA-Public Use
  Company Number: US-009507513-1206USA04980

PATIENT
  Age: 84 Year
  Sex: Male

DRUGS (2)
  1. SINGULAIR [Suspect]
     Indication: COUGH
     Dosage: 10 MG, QD
     Route: 048
     Dates: start: 201204
  2. ALLERGENIC EXTRACT [Concomitant]
     Dosage: UNK UNK, QW

REACTIONS (1)
  - Drug ineffective [Not Recovered/Not Resolved]
